FAERS Safety Report 8761094 (Version 1)
Quarter: 2012Q4

REPORT INFORMATION
  Report Type: Report from Study
  Country: DE (occurrence: DE)
  Receive Date: 20120830
  Receipt Date: 20120830
  Transmission Date: 20130627
  Serious: Yes (Hospitalization)
  Sender: FDA-Public Use
  Company Number: DE-ABBOTT-12P-062-0971133-00

PATIENT
  Age: 24 Year
  Sex: Female
  Weight: 54 kg

DRUGS (4)
  1. HUMIRA 40 MG/ 0.8 ML PRE-FILLED SYRINGE [Suspect]
     Indication: CROHN^S DISEASE
     Route: 058
     Dates: start: 20120504, end: 20120706
  2. CLONT [Suspect]
     Indication: PRODUCT USED FOR UNKNOWN INDICATION
     Dates: start: 20120731, end: 20120812
  3. METRONIDAZOLE [Suspect]
     Indication: PRODUCT USED FOR UNKNOWN INDICATION
     Dates: start: 20120731, end: 20120810
  4. PREDNISOLONE [Concomitant]
     Indication: CROHN^S DISEASE
     Dosage: 5 mg daily

REACTIONS (2)
  - Fistula [Recovered/Resolved]
  - Abscess [Recovered/Resolved]
